FAERS Safety Report 10103206 (Version 1)
Quarter: 2014Q2

REPORT INFORMATION
  Report Type: Spontaneous
  Country: US (occurrence: US)
  Receive Date: 20140424
  Receipt Date: 20140424
  Transmission Date: 20141212
  Serious: No
  Sender: FDA-Public Use
  Company Number: US-BRISTOL-MYERS SQUIBB COMPANY-20186185

PATIENT
  Age: 87 Year
  Sex: Female
  Weight: 86.17 kg

DRUGS (3)
  1. ELIQUIS [Suspect]
     Dates: start: 20140127
  2. TOPROL [Suspect]
     Dosage: 1DF=25-UNITS NOS
  3. LABETALOL [Concomitant]

REACTIONS (1)
  - Blood pressure abnormal [Unknown]
